FAERS Safety Report 4788890-4 (Version None)
Quarter: 2005Q4

REPORT INFORMATION
  Report Type: 
  Country: None (occurrence: None)
  Receive Date: 20051004
  Receipt Date: 20050919
  Transmission Date: 20060501
  Serious: Yes (Hospitalization)
  Sender: FDA-Public Use
  Company Number: 217925

PATIENT
  Age: 29 Year
  Sex: Male

DRUGS (1)
  1. RAPTIVA [Suspect]
     Indication: PSORIASIS
     Dosage: 1/WEEK, SUBCUTANEOUS
     Route: 058
     Dates: end: 20050730

REACTIONS (11)
  - BLOOD CULTURE POSITIVE [None]
  - BODY TEMPERATURE INCREASED [None]
  - DISSEMINATED INTRAVASCULAR COAGULATION [None]
  - ELECTROLYTE IMBALANCE [None]
  - ERYTHRODERMIC PSORIASIS [None]
  - HAEMATOCRIT DECREASED [None]
  - LUNG INFECTION [None]
  - PSEUDOMONAS INFECTION [None]
  - PYREXIA [None]
  - SKIN EXFOLIATION [None]
  - WHITE BLOOD CELL COUNT INCREASED [None]
